FAERS Safety Report 20711913 (Version 7)
Quarter: 2023Q2

REPORT INFORMATION
  Report Type: Spontaneous
  Country: US (occurrence: US)
  Receive Date: 20220414
  Receipt Date: 20230606
  Transmission Date: 20230721
  Serious: No
  Sender: FDA-Public Use
  Company Number: US-PFIZER INC-202200063126

PATIENT
  Age: 62 Year
  Sex: Female

DRUGS (1)
  1. IBRANCE [Suspect]
     Active Substance: PALBOCICLIB
     Indication: Breast cancer female
     Dosage: ONCE DAILY FOR 21 DAYS, FOLLOWED BY 7 DAYS OFF FOR EVERY 28 DAY CYCLE
     Route: 048
     Dates: start: 20220117, end: 202305

REACTIONS (7)
  - White blood cell count decreased [Unknown]
  - Fatigue [Unknown]
  - Alopecia [Unknown]
  - Nerve injury [Unknown]
  - Product dose omission in error [Unknown]
  - Dry skin [Unknown]
  - Immune system disorder [Unknown]

NARRATIVE: CASE EVENT DATE: 20220101
